FAERS Safety Report 7824074-0 (Version None)
Quarter: 2011Q4

REPORT INFORMATION
  Report Type: 
  Country: None (occurrence: None)
  Receive Date: 20111019
  Receipt Date: 20111012
  Transmission Date: 20120403
  Serious: No
  Sender: FDA-Public Use
  Company Number: PHEH2011US06624

PATIENT
  Sex: Female

DRUGS (6)
  1. VERAPAMIL [Concomitant]
     Dosage: UNK UKN, UNK
  2. TASIGNA [Suspect]
     Indication: CHRONIC MYELOID LEUKAEMIA
     Dosage: 150 MG, BID
     Route: 048
  3. CRESTOR [Concomitant]
     Dosage: UNK UKN, UNK
  4. SPIRONOLACTONE [Concomitant]
     Dosage: UNK UKN, UNK
  5. METFORMIN HCL [Concomitant]
     Dosage: UNK UKN, UNK
  6. SYNTHROID [Concomitant]
     Dosage: UNK UKN, UNK

REACTIONS (7)
  - FEELING ABNORMAL [None]
  - NERVOUSNESS [None]
  - EMOTIONAL DISORDER [None]
  - DEPRESSION [None]
  - LETHARGY [None]
  - MALAISE [None]
  - SWELLING [None]
